FAERS Safety Report 14524594 (Version 2)
Quarter: 2018Q1

REPORT INFORMATION
  Report Type: Spontaneous
  Country: US (occurrence: US)
  Receive Date: 20180213
  Receipt Date: 20180313
  Transmission Date: 20180509
  Serious: No
  Sender: FDA-Public Use
  Company Number: US-009507513-1802USA003553

PATIENT
  Sex: Male

DRUGS (1)
  1. DULERA [Suspect]
     Active Substance: FORMOTEROL FUMARATE DIHYDRATE\MOMETASONE FUROATE
     Dosage: 2 PUFFS, BID (TWICE DAILY)
     Dates: start: 20160429

REACTIONS (4)
  - Circumstance or information capable of leading to medication error [Unknown]
  - Device malfunction [Unknown]
  - No adverse event [Unknown]
  - Product container issue [Unknown]
